FAERS Safety Report 17125019 (Version 1)
Quarter: 2019Q4

REPORT INFORMATION
  Report Type: Spontaneous
  Country: CN (occurrence: CN)
  Receive Date: 20191206
  Receipt Date: 20191206
  Transmission Date: 20200122
  Serious: Yes (Other)
  Sender: FDA-Public Use
  Company Number: CN-FRESENIUS KABI-FK201913451

PATIENT
  Age: 33 Year
  Sex: Female
  Weight: 64 kg

DRUGS (2)
  1. LIPOVENOES MCT 20% [Suspect]
     Active Substance: EGG PHOSPHOLIPIDS\GLYCERIN\MEDIUM-CHAIN TRIGLYCERIDES\SOYBEAN OIL
     Indication: NUTRITIONAL SUPPLEMENTATION
     Dosage: 250ML,QD
     Route: 041
     Dates: start: 20191122, end: 20191122
  2. GLUCOSE/SODIUM CITRATE/SODIUM ACETATE/CALCIUM GLUCONATE/POTASSIUM CHLORIDE/SODIUM CHLORIDE/MAGNESIUM [Concomitant]
     Indication: FLUID REPLACEMENT
     Dosage: 500ML,QD
     Route: 041
     Dates: start: 20191109, end: 20191126

REACTIONS (5)
  - Oropharyngeal pain [Recovering/Resolving]
  - Headache [Recovering/Resolving]
  - Nausea [Recovering/Resolving]
  - Vomiting [Recovering/Resolving]
  - Back pain [Recovering/Resolving]

NARRATIVE: CASE EVENT DATE: 20191122
